FAERS Safety Report 7901496-0 (Version None)
Quarter: 2011Q4

REPORT INFORMATION
  Report Type: 
  Country: None (occurrence: None)
  Receive Date: 20111104
  Receipt Date: 20111021
  Transmission Date: 20120403
  Serious: Yes (Other)
  Sender: FDA-Public Use
  Company Number: TPA2011A07169

PATIENT

DRUGS (3)
  1. OLMESARTAN MEDOXOMIL [Concomitant]
  2. URALYT (SODIUM CITRATE ACID, POTASSIUM CITRATE) [Concomitant]
  3. FEBURIC (FEBUXOSTAT) [Suspect]
     Indication: HYPERURICAEMIA
     Dosage: 10 MG (10 MG, 1 IN 1 D) PER ORAL
     Route: 048
     Dates: start: 20110823, end: 20110829

REACTIONS (2)
  - RENAL ATROPHY [None]
  - RENAL TUBULAR NECROSIS [None]
